FAERS Safety Report 6086529-1 (Version None)
Quarter: 2009Q1

REPORT INFORMATION
  Report Type: 
  Country: None (occurrence: None)
  Receive Date: 20090218
  Receipt Date: 20090205
  Transmission Date: 20090719
  Serious: Yes (Other)
  Sender: FDA-Public Use
  Company Number: 8042625

PATIENT
  Age: 53 Year
  Sex: Male

DRUGS (6)
  1. KEPPRA [Suspect]
  2. CLOZAPINE [Suspect]
     Dosage: 50 MG PO
     Route: 048
     Dates: start: 20081007, end: 20081015
  3. DESYREL [Suspect]
     Dates: end: 20081104
  4. VALPROATE SODIUM [Suspect]
  5. ZYPREXA [Suspect]
  6. LITHIUM [Concomitant]

REACTIONS (2)
  - GRANULOCYTOPENIA [None]
  - NEUTROPHIL COUNT DECREASED [None]
